FAERS Safety Report 9015239 (Version 1)
Quarter: 2013Q1

REPORT INFORMATION
  Report Type: Spontaneous
  Country: FR (occurrence: FR)
  Receive Date: 20130116
  Receipt Date: 20130116
  Transmission Date: 20140127
  Serious: Yes (Hospitalization, Other)
  Sender: FDA-Public Use
  Company Number: FR-AMGEN-FRASP2013002262

PATIENT
  Age: 47 Year
  Sex: Male

DRUGS (5)
  1. ENBREL [Suspect]
     Indication: ANKYLOSING SPONDYLITIS
     Dosage: 25 MG, 2X/WK
     Route: 058
     Dates: start: 200612, end: 20100929
  2. CELIPROLOL [Concomitant]
     Dosage: 200 MG, 1X/DAY
     Route: 048
  3. SKENAN [Concomitant]
     Dosage: UNK
     Route: 048
  4. MOPRAL                             /00661201/ [Concomitant]
     Dosage: 10 MG, 1X/DAY
     Route: 048
  5. DAFALGAN [Concomitant]
     Dosage: UNK
     Route: 048

REACTIONS (3)
  - Clear cell renal cell carcinoma [Recovered/Resolved with Sequelae]
  - Autoimmune haemolytic anaemia [Recovered/Resolved]
  - Cholecystitis acute [Unknown]
